FAERS Safety Report 8863176 (Version 1)
Quarter: 2012Q4

REPORT INFORMATION
  Report Type: 
  Country: CA (occurrence: CA)
  Receive Date: 20121026
  Receipt Date: 20121026
  Transmission Date: 20130627
  Serious: Yes (Hospitalization)
  Sender: FDA-Public Use
  Company Number: CA-ELI_LILLY_AND_COMPANY-CA201210005453

PATIENT
  Age: 71 Year
  Sex: Female

DRUGS (9)
  1. FORTEO [Suspect]
     Indication: OSTEOPOROSIS
     Dosage: 20 ug, qd
     Route: 058
     Dates: start: 20120125, end: 20120907
  2. OXYCONTIN [Concomitant]
  3. TYLENOL NO.1 [Concomitant]
  4. CALCIUM [Concomitant]
  5. VITAMIN D NOS [Concomitant]
  6. INIBACE PLUS [Concomitant]
  7. PREDNISONE [Concomitant]
  8. ENBREL [Concomitant]
  9. PLAQUENIL [Concomitant]

REACTIONS (2)
  - Knee arthroplasty [Not Recovered/Not Resolved]
  - Drug hypersensitivity [Not Recovered/Not Resolved]
